FAERS Safety Report 8519099-6 (Version None)
Quarter: 2012Q3

REPORT INFORMATION
  Report Type: 
  Country: None (occurrence: None)
  Receive Date: 20120712
  Receipt Date: 20120712
  Transmission Date: 20120928
  Serious: Yes (Hospitalization)
  Sender: FDA-Public Use
  Company Number: None

PATIENT
  Sex: Male
  Weight: 72.6 kg

DRUGS (1)
  1. CISPLATIN [Suspect]
     Dosage: 381 MG

REACTIONS (5)
  - WEIGHT DECREASED [None]
  - NAUSEA [None]
  - MALNUTRITION [None]
  - VOMITING [None]
  - DEHYDRATION [None]
